FAERS Safety Report 16235695 (Version 1)
Quarter: 2019Q2

REPORT INFORMATION
  Report Type: Report from Study
  Country: US (occurrence: US)
  Receive Date: 20190424
  Receipt Date: 20190424
  Transmission Date: 20190711
  Serious: Yes (Hospitalization, Other)
  Sender: FDA-Public Use
  Company Number: US-GILEAD-2019-0404202

PATIENT
  Age: 61 Year
  Sex: Female

DRUGS (1)
  1. RANOLAZINE. [Suspect]
     Active Substance: RANOLAZINE
     Indication: ANGINA UNSTABLE
     Dosage: 1000 MG, BID
     Route: 048
     Dates: start: 20190123

REACTIONS (2)
  - Cerebrovascular accident [Unknown]
  - Angina unstable [Unknown]

NARRATIVE: CASE EVENT DATE: 20190123
